FAERS Safety Report 8497817 (Version 5)
Quarter: 2013Q2

REPORT INFORMATION
  Report Type: Spontaneous
  Country: FR (occurrence: FR)
  Receive Date: 20120406
  Receipt Date: 20130520
  Transmission Date: 20140414
  Serious: Yes (Hospitalization, Other)
  Sender: FDA-Public Use
  Company Number: FR-PFIZER INC-2012082362

PATIENT
  Age: 48 Year
  Sex: Male

DRUGS (13)
  1. ARACYTINE [Suspect]
     Indication: DIFFUSE LARGE B-CELL LYMPHOMA
     Dosage: CYCLIC
     Route: 042
     Dates: end: 20100930
  2. CARDIOXANE [Suspect]
     Indication: DIFFUSE LARGE B-CELL LYMPHOMA
     Dosage: 3000 MG, CYCLIC
     Route: 042
     Dates: start: 20100205, end: 20100327
  3. DOXORUBICIN EBEWE [Suspect]
     Indication: DIFFUSE LARGE B-CELL LYMPHOMA
     Dosage: 151 MG, CYCLIC
     Route: 042
     Dates: start: 20100205, end: 20100327
  4. METHOTREXATE MYLAN [Suspect]
     Indication: DIFFUSE LARGE B-CELL LYMPHOMA
     Dosage: CYCLIC
     Route: 037
     Dates: start: 20100205, end: 20100327
  5. METHOTREXATE MYLAN [Suspect]
     Dosage: 6200 MG (3 G/M2), CYCLIC
     Route: 037
     Dates: start: 20100429, end: 20100514
  6. ETOPOPHOS [Suspect]
     Indication: DIFFUSE LARGE B-CELL LYMPHOMA
     Dosage: UNK, CYCLIC
     Route: 042
     Dates: start: 20100531
  7. ENDOXAN [Suspect]
     Indication: DIFFUSE LARGE B-CELL LYMPHOMA
     Dosage: UNK, CYCLIC
     Route: 042
     Dates: start: 20100205, end: 20100327
  8. BLEOMYCINE BELLON [Suspect]
     Indication: DIFFUSE LARGE B-CELL LYMPHOMA
     Dosage: 10 MG, CYCLIC
     Route: 042
     Dates: start: 20100205, end: 20100323
  9. MABTHERA [Suspect]
     Indication: DIFFUSE LARGE B-CELL LYMPHOMA
     Dosage: UNK
     Route: 042
     Dates: start: 20100205, end: 20100327
  10. MABTHERA [Suspect]
     Dosage: UNK, CYCLIC
     Route: 042
     Dates: start: 20100531
  11. HOLOXAN [Suspect]
     Indication: DIFFUSE LARGE B-CELL LYMPHOMA
     Dosage: UNK
     Route: 042
     Dates: start: 20100531
  12. ELDISINE [Suspect]
     Indication: DIFFUSE LARGE B-CELL LYMPHOMA
     Dosage: 4 MG, CYCLIC
     Route: 042
     Dates: start: 20100205, end: 20100327
  13. PREDNISONE [Concomitant]
     Indication: DIFFUSE LARGE B-CELL LYMPHOMA
     Dosage: UNK, CYCLIC
     Dates: start: 20100205, end: 20100327

REACTIONS (5)
  - Second primary malignancy [Recovered/Resolved]
  - Acute myelomonocytic leukaemia [Recovered/Resolved]
  - Pancytopenia [Not Recovered/Not Resolved]
  - Disease recurrence [Not Recovered/Not Resolved]
  - Neoplasm malignant [Not Recovered/Not Resolved]
